FAERS Safety Report 19934534 (Version 1)
Quarter: 2021Q4

REPORT INFORMATION
  Report Type: Spontaneous
  Country: US (occurrence: US)
  Receive Date: 20211008
  Receipt Date: 20211008
  Transmission Date: 20220303
  Serious: Yes (Death)
  Sender: FDA-Public Use
  Company Number: US-IBSA PHARMA INC.-2021-IBS-01828

PATIENT

DRUGS (3)
  1. FLECTOR [Suspect]
     Active Substance: DICLOFENAC EPOLAMINE
     Indication: Product used for unknown indication
  2. CELEBREX [Suspect]
     Active Substance: CELECOXIB
     Indication: Product used for unknown indication
  3. CLONIXIN LYSINE [Suspect]
     Active Substance: CLONIXIN LYSINE
     Indication: Product used for unknown indication

REACTIONS (1)
  - Death [Fatal]
